FAERS Safety Report 18545939 (Version 1)
Quarter: 2020Q4

REPORT INFORMATION
  Report Type: Spontaneous
  Country: US (occurrence: US)
  Receive Date: 20201125
  Receipt Date: 20201125
  Transmission Date: 20210114
  Serious: Yes (Life-Threatening, Hospitalization)
  Sender: FDA-Public Use
  Company Number: US-MYLANLABS-2020M1097367

PATIENT
  Age: 74 Year
  Sex: Male
  Weight: 75 kg

DRUGS (15)
  1. DONEPEZIL. [Suspect]
     Active Substance: DONEPEZIL
     Indication: AGGRESSION
  2. PRAVASTATIN. [Concomitant]
     Active Substance: PRAVASTATIN
     Indication: PRODUCT USED FOR UNKNOWN INDICATION
     Dosage: 20 MILLIGRAM, QD
     Route: 065
  3. VENLAFAXINE [Suspect]
     Active Substance: VENLAFAXINE HYDROCHLORIDE
     Indication: MIGRAINE PROPHYLAXIS
  4. VALPROIC ACID. [Suspect]
     Active Substance: VALPROIC ACID
     Indication: MOOD SWINGS
     Dosage: 250 MILLIGRAM, BID
     Route: 065
     Dates: start: 20180131
  5. DONEPEZIL. [Suspect]
     Active Substance: DONEPEZIL
     Indication: AGITATION
     Dosage: 10 MILLIGRAM, QD
     Route: 065
     Dates: start: 2016
  6. INSULIN GLARGINE [Concomitant]
     Active Substance: INSULIN GLARGINE
     Indication: TYPE 2 DIABETES MELLITUS
     Dosage: THE MAN RECEIVED 15 UNIT OF INSULIN-GLARGINE
     Route: 065
  7. QUETIAPINE. [Suspect]
     Active Substance: QUETIAPINE
     Dosage: 50 MILLIGRAM, BID AFTER STOPPING THE DRUG ON 12 FEBRUARY 2018?
     Dates: start: 201903
  8. VENLAFAXINE [Suspect]
     Active Substance: VENLAFAXINE HYDROCHLORIDE
     Indication: DEPRESSIVE SYMPTOM
     Dosage: 37.5 MILLIGRAM, BID
     Route: 065
     Dates: start: 201607, end: 201802
  9. MELATONIN [Concomitant]
     Active Substance: MELATONIN
     Indication: INSOMNIA
     Dosage: 3 MILLIGRAM, QD, MAN RECEIVED MELATONIN ONCE PER EVENING
     Route: 065
  10. TRAZODONE [Suspect]
     Active Substance: TRAZODONE HYDROCHLORIDE
     Indication: DEPRESSION
     Dosage: 50 MILLIGRAM THE MAN RECEIVED TRAZODONE AS NEEDED (TAKEN 2 TO 3TIMES PER WEEK)
     Route: 065
     Dates: end: 201802
  11. TAMSULOSIN [Concomitant]
     Active Substance: TAMSULOSIN
     Indication: PRODUCT USED FOR UNKNOWN INDICATION
     Dosage: 0.4 MILLIGRAM, QD MAN RECEIVED TAMSULOSIN ONCE PER EVENING
     Route: 065
  12. MEMANTINE. [Concomitant]
     Active Substance: MEMANTINE
     Indication: BEHAVIOURAL THERAPY
     Dosage: 5 MILLIGRAM
     Route: 065
  13. VALPROIC ACID. [Suspect]
     Active Substance: VALPROIC ACID
     Indication: MIGRAINE PROPHYLAXIS
     Dosage: 125 MILLIGRAM, BID
     Route: 065
     Dates: start: 201605, end: 201801
  14. METFORMIN [Concomitant]
     Active Substance: METFORMIN HYDROCHLORIDE
     Indication: TYPE 2 DIABETES MELLITUS
     Dosage: 1000 MILLIGRAM, .5 DAY
     Route: 065
  15. QUETIAPINE. [Suspect]
     Active Substance: QUETIAPINE
     Indication: AGGRESSION
     Dosage: 25 MILLIGRAM, BID
     Route: 065
     Dates: end: 20180212

REACTIONS (2)
  - Serotonin syndrome [Recovered/Resolved]
  - Off label use [Unknown]

NARRATIVE: CASE EVENT DATE: 20180212
